FAERS Safety Report 8509299-3 (Version None)
Quarter: 2012Q3

REPORT INFORMATION
  Report Type: 
  Country: None (occurrence: None)
  Receive Date: 20120713
  Receipt Date: 20120702
  Transmission Date: 20120928
  Serious: Yes (Hospitalization)
  Sender: FDA-Public Use
  Company Number: ES-GILEAD-2012-0052796

PATIENT
  Sex: Female

DRUGS (2)
  1. TADALAFIL [Suspect]
     Indication: PULMONARY ARTERIAL HYPERTENSION
     Dosage: 40 MG, QD
     Route: 048
     Dates: start: 20101224, end: 20120321
  2. AMBRISENTAN [Suspect]
     Indication: PULMONARY ARTERIAL HYPERTENSION
     Dosage: 10 MG, QD
     Route: 048
     Dates: start: 20101224, end: 20120321

REACTIONS (3)
  - TRANSAMINASES INCREASED [None]
  - ANAEMIA [None]
  - FLUID RETENTION [None]
